FAERS Safety Report 6571594-5 (Version None)
Quarter: 2010Q1

REPORT INFORMATION
  Report Type: 
  Country: None (occurrence: None)
  Receive Date: 20100205
  Receipt Date: 20100126
  Transmission Date: 20100710
  Serious: No
  Sender: FDA-Public Use
  Company Number: FR-JNJFOC-20091202339

PATIENT
  Sex: Male
  Weight: 34 kg

DRUGS (2)
  1. CONCERTA [Suspect]
     Indication: PSYCHOMOTOR HYPERACTIVITY
     Route: 048
  2. CONCERTA [Suspect]
     Route: 048

REACTIONS (1)
  - ARRHYTHMIA [None]
